FAERS Safety Report 9850280 (Version 1)
Quarter: 2013Q4

REPORT INFORMATION
  Report Type: Spontaneous
  Country: US (occurrence: None)
  Receive Date: 20131226
  Receipt Date: 20131226
  Transmission Date: 20140711
  Serious: Yes (Hospitalization)
  Sender: FDA-Public Use
  Company Number: PHEH2013US012234

PATIENT
  Sex: 0

DRUGS (1)
  1. SANDOSTATIN LAR DEPOT (OCTREOTIDE WITH POLY(D L-LACTIDE-CO-GLYCOLIDE)) UNKNOWN [Suspect]
     Indication: CARCINOID SYNDROME
     Dosage: 20 MG, ONCE EVERY 28 DAYS, INTRAMUSCULAR
     Dates: start: 20130604, end: 20130604

REACTIONS (1)
  - Pancreatitis [None]
